FAERS Safety Report 5258359-1 (Version None)
Quarter: 2007Q1

REPORT INFORMATION
  Report Type: 
  Country: None (occurrence: None)
  Receive Date: 20061117
  Receipt Date: 20060321
  Transmission Date: 20070707
  Serious: Yes (Other)
  Sender: FDA-Public Use
  Company Number: US-JNJFOC-20060305590

PATIENT
  Age: 81 Year
  Sex: Female

DRUGS (1)
  1. LEVAQUIN [Suspect]

REACTIONS (1)
  - THROMBOCYTOPENIA [None]
